FAERS Safety Report 5017040-4 (Version None)
Quarter: 2006Q2

REPORT INFORMATION
  Report Type: 
  Country: None (occurrence: None)
  Receive Date: 20060414
  Receipt Date: 20060310
  Transmission Date: 20061013
  Serious: Yes (Other)
  Sender: FDA-Public Use
  Company Number: 2006026255

PATIENT
  Age: 81 Year
  Sex: Female

DRUGS (6)
  1. MACUGEN [Suspect]
     Indication: MACULAR DEGENERATION
     Dosage: 0.3 MG INTRAOCULAR
     Route: 031
     Dates: start: 20050324, end: 20051117
  2. LASIX [Concomitant]
  3. SYNTHROID [Concomitant]
  4. FOSAMAX [Concomitant]
  5. GLIPIZIDE [Concomitant]
  6. POLYTRIM (POLYMYXIN B SULFATE, TRIMETHOPRIM) [Concomitant]

REACTIONS (1)
  - ENDOPHTHALMITIS [None]
